FAERS Safety Report 13580127 (Version 2)
Quarter: 2018Q2

REPORT INFORMATION
  Report Type: Spontaneous
  Country: US (occurrence: US)
  Receive Date: 20170525
  Receipt Date: 20180525
  Transmission Date: 20180711
  Serious: No
  Sender: FDA-Public Use
  Company Number: US-TEVA-736706ACC

PATIENT
  Sex: Female
  Weight: 58 kg

DRUGS (1)
  1. JUNEL FE 1/20 [Suspect]
     Active Substance: ETHINYL ESTRADIOL\NORETHINDRONE ACETATE
     Indication: CONTRACEPTION
     Dosage: DOSE STRENGTH: 1 MG/20 MCG
     Route: 065
     Dates: start: 20170108, end: 201705

REACTIONS (8)
  - Nausea [Recovering/Resolving]
  - Headache [Recovering/Resolving]
  - Dizziness [Unknown]
  - Menstruation irregular [Unknown]
  - Mood altered [Unknown]
  - Muscle spasms [Unknown]
  - Crying [Unknown]
  - Insomnia [Unknown]
